FAERS Safety Report 15783606 (Version 1)
Quarter: 2019Q1

REPORT INFORMATION
  Report Type: Report from Study
  Country: CA (occurrence: CA)
  Receive Date: 20190102
  Receipt Date: 20190102
  Transmission Date: 20190417
  Serious: Yes (Death, Hospitalization)
  Sender: FDA-Public Use
  Company Number: CA-EISAI MEDICAL RESEARCH-EC-2018-035497

PATIENT
  Age: 65 Year
  Sex: Female

DRUGS (17)
  1. RIVAROXABAN [Concomitant]
     Active Substance: RIVAROXABAN
  2. PREDNISONE. [Concomitant]
     Active Substance: PREDNISONE
  3. LENVIMA [Suspect]
     Active Substance: LENVATINIB
     Route: 048
     Dates: start: 2018, end: 2018
  4. LENVIMA [Suspect]
     Active Substance: LENVATINIB
     Route: 048
     Dates: start: 201803, end: 2018
  5. PANTOPRAZOLE [Concomitant]
     Active Substance: PANTOPRAZOLE
  6. FUROSEMIDE. [Concomitant]
     Active Substance: FUROSEMIDE
  7. LENVIMA [Suspect]
     Active Substance: LENVATINIB
     Route: 048
     Dates: start: 201805, end: 201807
  8. LENVIMA [Suspect]
     Active Substance: LENVATINIB
     Indication: RENAL CELL CARCINOMA
     Route: 048
     Dates: start: 20180117, end: 2018
  9. LENVIMA [Suspect]
     Active Substance: LENVATINIB
     Route: 048
     Dates: start: 2018, end: 20180406
  10. FLORINEF ACETATE [Concomitant]
     Active Substance: FLUDROCORTISONE ACETATE
  11. LENVIMA [Suspect]
     Active Substance: LENVATINIB
     Route: 048
     Dates: start: 201807, end: 201807
  12. SYNTHROID [Concomitant]
     Active Substance: LEVOTHYROXINE SODIUM
  13. RAMIPRIL. [Concomitant]
     Active Substance: RAMIPRIL
  14. METOPROLOL. [Concomitant]
     Active Substance: METOPROLOL
  15. LENVIMA [Suspect]
     Active Substance: LENVATINIB
     Route: 048
     Dates: start: 201804, end: 201805
  16. HYDROMORPHONE LA [Concomitant]
  17. HYDROMORPHONE SA [Concomitant]

REACTIONS (14)
  - Dyspnoea [Unknown]
  - Musculoskeletal pain [Unknown]
  - Urinary tract infection [Recovering/Resolving]
  - Diarrhoea [Recovering/Resolving]
  - Joint injury [Recovering/Resolving]
  - Fall [Recovered/Resolved]
  - Cardiac disorder [Unknown]
  - Clavicle fracture [Unknown]
  - Spinal fracture [Unknown]
  - Pulmonary oedema [Unknown]
  - Back pain [Unknown]
  - Vomiting [Recovering/Resolving]
  - Rectal haemorrhage [Recovering/Resolving]
  - Nasopharyngitis [Unknown]

NARRATIVE: CASE EVENT DATE: 2018
